FAERS Safety Report 5128754-X (Version None)
Quarter: 2006Q4

REPORT INFORMATION
  Report Type: 
  Country: None (occurrence: None)
  Receive Date: 20061011
  Receipt Date: 20060928
  Transmission Date: 20070319
  Serious: Yes (Death)
  Sender: FDA-Public Use
  Company Number: 2006121040

PATIENT
  Sex: Female

DRUGS (3)
  1. CELEBREX [Suspect]
     Dates: start: 19990322, end: 20000427
  2. BEXTRA [Suspect]
     Dates: start: 20011101
  3. VIOXX [Suspect]
     Dates: start: 20000420, end: 20010724

REACTIONS (1)
  - MYOCARDIAL INFARCTION [None]
